FAERS Safety Report 8902370 (Version 1)
Quarter: 2012Q4

REPORT INFORMATION
  Report Type: Report from Study
  Country: CA (occurrence: CA)
  Receive Date: 20121112
  Receipt Date: 20121112
  Transmission Date: 20130627
  Serious: Yes (Hospitalization)
  Sender: FDA-Public Use
  Company Number: CA-JNJFOC-20121101109

PATIENT
  Age: 65 Year
  Sex: Female
  Weight: 74 kg

DRUGS (12)
  1. REMICADE [Suspect]
     Indication: CROHN^S DISEASE
     Dosage: 42 infusions
     Route: 042
  2. DOMPERIDONE [Concomitant]
     Route: 065
  3. TRAZODONE HYDROCHLORIDE [Concomitant]
     Route: 065
  4. ATIVAN [Concomitant]
     Route: 065
  5. ALENDRONATE [Concomitant]
     Route: 065
  6. CITALOPRAM [Concomitant]
     Route: 065
  7. MICRO-K [Concomitant]
     Route: 065
  8. RISPERIDONE [Concomitant]
     Route: 065
  9. ELTROXIN [Concomitant]
     Route: 065
  10. EFFEXOR [Concomitant]
     Route: 065
  11. AZATHIOPRINE [Concomitant]
     Route: 065
  12. RANITIDINE [Concomitant]
     Route: 065

REACTIONS (1)
  - Intestinal perforation [Recovered/Resolved]
